FAERS Safety Report 20102130 (Version 1)
Quarter: 2021Q4

REPORT INFORMATION
  Report Type: Spontaneous
  Country: US (occurrence: None)
  Receive Date: 20211122
  Receipt Date: 20211122
  Transmission Date: 20220303
  Serious: Yes (Hospitalization)
  Sender: FDA-Public Use
  Company Number: None

PATIENT
  Age: 53 Year
  Sex: Male

DRUGS (16)
  1. TALTZ [Suspect]
     Active Substance: IXEKIZUMAB
     Indication: Product used for unknown indication
     Dosage: FREQUENCY : MONTHLY;?
     Route: 058
  2. BYSTOLIC [Concomitant]
     Active Substance: NEBIVOLOL HYDROCHLORIDE
  3. CRESTOR [Concomitant]
     Active Substance: ROSUVASTATIN CALCIUM
  4. CYCLOBENZAPRINE [Concomitant]
     Active Substance: CYCLOBENZAPRINE
  5. DICLOFENAC [Concomitant]
     Active Substance: DICLOFENAC
  6. JANUVIA [Concomitant]
     Active Substance: SITAGLIPTIN PHOSPHATE
  7. LEVOTHYROXINE [Concomitant]
     Active Substance: LEVOTHYROXINE
  8. METHOTREXATE [Concomitant]
     Active Substance: METHOTREXATE
  9. NORCO [Concomitant]
     Active Substance: ACETAMINOPHEN\HYDROCODONE BITARTRATE
  10. NOVOLOG [Concomitant]
     Active Substance: INSULIN ASPART
  11. PREDNISONE [Concomitant]
     Active Substance: PREDNISONE
  12. SULFASALAZINE DELAYED-RELEASE [Concomitant]
     Active Substance: SULFASALAZINE
  13. TOUJEO SOLO [Concomitant]
  14. TRILIPIX [Concomitant]
     Active Substance: FENOFIBRIC ACID
  15. VIT D 3 [Concomitant]
  16. ZAROXOLYN [Concomitant]
     Active Substance: METOLAZONE

REACTIONS (8)
  - Myocardial infarction [None]
  - Product dose omission issue [None]
  - Condition aggravated [None]
  - Pain [None]
  - Joint stiffness [None]
  - Fatigue [None]
  - Fatigue [None]
  - Joint stiffness [None]

NARRATIVE: CASE EVENT DATE: 20210927
